FAERS Safety Report 9291335 (Version 2)
Quarter: 2013Q2

REPORT INFORMATION
  Report Type: Spontaneous
  Country: FR (occurrence: None)
  Receive Date: 20130513
  Receipt Date: 20130513
  Transmission Date: 20140414
  Serious: Yes (Hospitalization)
  Sender: FDA-Public Use
  Company Number: SYM-2013-03679

PATIENT
  Age: 90 Year
  Sex: Female

DRUGS (11)
  1. FLAGYL [Suspect]
     Indication: CLOSTRIDIUM DIFFICILE INFECTION
     Route: 048
     Dates: start: 20130215, end: 20130225
  2. SEROPLEX (ESCITALOPRAM OXALATE) (ESCITALOPRAM OXALATE) [Concomitant]
  3. MODOPAR (MADOPAR) (LEVODOPA, BENSERAZIDE HYDROCHLORIDE) [Concomitant]
  4. ROVAMYCINE (SPIRAMYCIN) (SPIRAMYCIN) [Concomitant]
  5. AMLODIPINE (AMLODIPINE) (AMLODIPINE) [Concomitant]
  6. EXELON (RIVASTIGMINE TARTRATE) (RIVASTIGMINE TARTRATE) [Concomitant]
  7. LOVERNOX (ENOXAPARIN SODIUM) (ENOXAPARIN SODIUM) [Concomitant]
  8. ZOPHREN (ONDANSETRON HYDROCHLORIDE) (ONDANSETRON HYDROCHLORIDE) [Concomitant]
  9. ROCEPHINE (CEFTRIAXONE SODIUM) (CEFTRIAXONE SODIUM) [Concomitant]
  10. VITAMIN B12 (CYANOCOBALAMIN) (CYANOCOBALAMIN) [Concomitant]
  11. DOMEPERIDONE (DOMEPERIDONE) (DOMEPERIDONE) [Concomitant]

REACTIONS (8)
  - Hepatitis [None]
  - Hepatitis [None]
  - Hepatitis cholestatic [None]
  - Hypokalaemia [None]
  - Prothrombin time shortened [None]
  - Platelet count decreased [None]
  - Vomiting [None]
  - Diarrhoea [None]
